FAERS Safety Report 5122965-5 (Version None)
Quarter: 2006Q4

REPORT INFORMATION
  Report Type: 
  Country: None (occurrence: None)
  Receive Date: 20061005
  Receipt Date: 20060919
  Transmission Date: 20070319
  Serious: No
  Sender: FDA-Public Use
  Company Number: CTI_0904_2006

PATIENT
  Age: 45 Year
  Sex: Male
  Weight: 94.3482 kg

DRUGS (4)
  1. ZYFLO [Suspect]
     Indication: ASTHMA
     Dosage: DF
     Dates: end: 20060727
  2. NEXIUM [Concomitant]
  3. SINGULAIR [Concomitant]
  4. FLONASE [Concomitant]

REACTIONS (1)
  - SINUS TACHYCARDIA [None]
